FAERS Safety Report 25481271 (Version 1)
Quarter: 2025Q2

REPORT INFORMATION
  Report Type: Spontaneous
  Country: CA (occurrence: CA)
  Receive Date: 20250626
  Receipt Date: 20250626
  Transmission Date: 20250717
  Serious: Yes (Death, Other)
  Sender: BRISTOL-MYERS SQUIBB COMPANY
  Company Number: CA-BRISTOL-MYERS SQUIBB COMPANY-2025-090563

PATIENT
  Sex: Female

DRUGS (214)
  1. ORENCIA [Suspect]
     Active Substance: ABATACEPT
     Indication: Product used for unknown indication
     Route: 042
  2. ORENCIA [Suspect]
     Active Substance: ABATACEPT
     Dosage: 1 EVERY 1 DAYS
     Route: 042
  3. ORENCIA [Suspect]
     Active Substance: ABATACEPT
     Route: 042
  4. ORENCIA [Suspect]
     Active Substance: ABATACEPT
     Indication: Product used for unknown indication
     Route: 058
  5. ORENCIA [Suspect]
     Active Substance: ABATACEPT
     Route: 058
  6. ORENCIA [Suspect]
     Active Substance: ABATACEPT
     Route: 058
  7. ORENCIA [Suspect]
     Active Substance: ABATACEPT
     Route: 058
  8. ORENCIA [Suspect]
     Active Substance: ABATACEPT
     Indication: Product used for unknown indication
  9. ORENCIA [Suspect]
     Active Substance: ABATACEPT
     Route: 053
  10. ORENCIA [Suspect]
     Active Substance: ABATACEPT
  11. ORENCIA [Suspect]
     Active Substance: ABATACEPT
  12. ORENCIA [Suspect]
     Active Substance: ABATACEPT
  13. TRIAMCINOLONE ACETONIDE [Suspect]
     Active Substance: TRIAMCINOLONE ACETONIDE
     Indication: Product used for unknown indication
     Route: 014
  14. ADALIMUMAB [Concomitant]
     Active Substance: ADALIMUMAB
     Indication: Product used for unknown indication
     Route: 058
  15. ADALIMUMAB [Concomitant]
     Active Substance: ADALIMUMAB
     Route: 042
  16. ADALIMUMAB [Concomitant]
     Active Substance: ADALIMUMAB
     Route: 042
  17. ADALIMUMAB [Concomitant]
     Active Substance: ADALIMUMAB
     Route: 048
  18. ADALIMUMAB [Concomitant]
     Active Substance: ADALIMUMAB
     Route: 058
  19. ALENDRONATE SODIUM [Concomitant]
     Active Substance: ALENDRONATE SODIUM
     Indication: Product used for unknown indication
     Route: 048
  20. ALENDRONATE SODIUM [Concomitant]
     Active Substance: ALENDRONATE SODIUM
  21. ALENDRONATE SODIUM [Concomitant]
     Active Substance: ALENDRONATE SODIUM
     Route: 016
  22. ALENDRONATE SODIUM [Concomitant]
     Active Substance: ALENDRONATE SODIUM
     Route: 016
  23. PANTOPRAZOLE SODIUM ANHYDROUS [Concomitant]
     Active Substance: PANTOPRAZOLE SODIUM ANHYDROUS
     Indication: Product used for unknown indication
     Route: 016
  24. PANTOPRAZOLE SODIUM ANHYDROUS [Concomitant]
     Active Substance: PANTOPRAZOLE SODIUM ANHYDROUS
     Route: 016
  25. APREMILAST [Concomitant]
     Active Substance: APREMILAST
     Indication: Product used for unknown indication
     Dosage: 1 EVERY 1 DAYS
  26. APREMILAST [Concomitant]
     Active Substance: APREMILAST
     Dosage: 1 EVERY 1 DAYS
  27. APREMILAST [Concomitant]
     Active Substance: APREMILAST
     Dosage: 1 EVERY 1 DAYS
     Route: 048
  28. APREMILAST [Concomitant]
     Active Substance: APREMILAST
     Route: 048
  29. APREMILAST [Concomitant]
     Active Substance: APREMILAST
  30. APREMILAST [Concomitant]
     Active Substance: APREMILAST
  31. APREMILAST [Concomitant]
     Active Substance: APREMILAST
  32. AZATHIOPRINE [Concomitant]
     Active Substance: AZATHIOPRINE
     Indication: Product used for unknown indication
  33. BIOFLAVONOIDS [Concomitant]
     Active Substance: BIOFLAVONOIDS
     Indication: Product used for unknown indication
  34. CALCIUM CARBONATE [Concomitant]
     Active Substance: CALCIUM CARBONATE
     Indication: Product used for unknown indication
  35. CALCIUM CITRATE [Concomitant]
     Active Substance: CALCIUM CITRATE
     Indication: Product used for unknown indication
  36. CALCIUM GLUBIONATE [Concomitant]
     Active Substance: CALCIUM GLUBIONATE
     Indication: Product used for unknown indication
  37. CELECOXIB [Concomitant]
     Active Substance: CELECOXIB
     Indication: Product used for unknown indication
  38. CELECOXIB [Concomitant]
     Active Substance: CELECOXIB
     Route: 058
  39. CELECOXIB [Concomitant]
     Active Substance: CELECOXIB
     Route: 048
  40. CELECOXIB [Concomitant]
     Active Substance: CELECOXIB
  41. CERTOLIZUMAB PEGOL [Concomitant]
     Active Substance: CERTOLIZUMAB PEGOL
     Indication: Product used for unknown indication
     Route: 058
  42. CETIRIZINE HYDROCHLORIDE [Concomitant]
     Active Substance: CETIRIZINE HYDROCHLORIDE
     Indication: Product used for unknown indication
     Route: 048
  43. CETIRIZINE HYDROCHLORIDE [Concomitant]
     Active Substance: CETIRIZINE HYDROCHLORIDE
  44. CETIRIZINE HYDROCHLORIDE [Concomitant]
     Active Substance: CETIRIZINE HYDROCHLORIDE
     Route: 048
  45. CETIRIZINE HYDROCHLORIDE [Concomitant]
     Active Substance: CETIRIZINE HYDROCHLORIDE
  46. CHLORHEXIDINE [Concomitant]
     Active Substance: CHLORHEXIDINE
     Indication: Product used for unknown indication
     Route: 048
  47. CHLORHEXIDINE [Concomitant]
     Active Substance: CHLORHEXIDINE
  48. CHLORHEXIDINE [Concomitant]
     Active Substance: CHLORHEXIDINE
     Route: 002
  49. CHLORHEXIDINE GLUCONATE [Concomitant]
     Active Substance: CHLORHEXIDINE GLUCONATE
     Indication: Product used for unknown indication
  50. CHLORHEXIDINE GLUCONATE [Concomitant]
     Active Substance: CHLORHEXIDINE GLUCONATE
     Route: 048
  51. CIMZIA [Concomitant]
     Active Substance: CERTOLIZUMAB PEGOL
     Indication: Product used for unknown indication
     Route: 058
  52. CIMZIA [Concomitant]
     Active Substance: CERTOLIZUMAB PEGOL
     Route: 058
  53. CIMZIA [Concomitant]
     Active Substance: CERTOLIZUMAB PEGOL
     Route: 058
  54. CLONIDINE HYDROCHLORIDE [Concomitant]
     Active Substance: CLONIDINE HYDROCHLORIDE
     Indication: Product used for unknown indication
  55. CORTISONE (HYDROCORTISONE) [Concomitant]
     Active Substance: HYDROCORTISONE
     Indication: Product used for unknown indication
     Route: 058
  56. CORTISONE ACETATE [Concomitant]
     Active Substance: CORTISONE ACETATE
     Indication: Product used for unknown indication
     Route: 048
  57. CORTISONE ACETATE [Concomitant]
     Active Substance: CORTISONE ACETATE
     Route: 003
  58. CORTISONE ACETATE [Concomitant]
     Active Substance: CORTISONE ACETATE
     Route: 003
  59. CORTISONE ACETATE [Concomitant]
     Active Substance: CORTISONE ACETATE
     Route: 003
  60. DESOXIMETASONE [Concomitant]
     Active Substance: DESOXIMETASONE
     Indication: Product used for unknown indication
     Route: 058
  61. DESOXIMETASONE [Concomitant]
     Active Substance: DESOXIMETASONE
     Route: 003
  62. DESOXIMETASONE [Concomitant]
     Active Substance: DESOXIMETASONE
     Route: 048
  63. DICLOFENAC [Concomitant]
     Active Substance: DICLOFENAC
     Indication: Product used for unknown indication
  64. DICLOFENAC [Concomitant]
     Active Substance: DICLOFENAC
  65. DICLOFENAC DIETHYLAMINE [Concomitant]
     Active Substance: DICLOFENAC DIETHYLAMINE
     Indication: Product used for unknown indication
  66. DICLOFENAC DIETHYLAMINE [Concomitant]
     Active Substance: DICLOFENAC DIETHYLAMINE
  67. DICLOFENAC DIETHYLAMINE [Concomitant]
     Active Substance: DICLOFENAC DIETHYLAMINE
  68. DICLOFENAC POTASSIUM [Concomitant]
     Active Substance: DICLOFENAC POTASSIUM
     Indication: Product used for unknown indication
  69. DICLOFENAC POTASSIUM [Concomitant]
     Active Substance: DICLOFENAC POTASSIUM
  70. DICLOFENAC SODIUM [Concomitant]
     Active Substance: DICLOFENAC SODIUM
     Indication: Product used for unknown indication
  71. DICLOFENAC SODIUM [Concomitant]
     Active Substance: DICLOFENAC SODIUM
     Route: 058
  72. DICLOFENAC SODIUM [Concomitant]
     Active Substance: DICLOFENAC SODIUM
  73. DICLOFENAC SODIUM [Concomitant]
     Active Substance: DICLOFENAC SODIUM
  74. DICLOFENAC SODIUM [Concomitant]
     Active Substance: DICLOFENAC SODIUM
  75. DICLOFENAC SODIUM [Concomitant]
     Active Substance: DICLOFENAC SODIUM
  76. DILTIAZEM HYDROCHLORIDE [Concomitant]
     Active Substance: DILTIAZEM HYDROCHLORIDE
     Indication: Product used for unknown indication
     Route: 042
  77. DILTIAZEM HYDROCHLORIDE [Concomitant]
     Active Substance: DILTIAZEM HYDROCHLORIDE
     Route: 042
  78. DIPHENHYDRAMINE HYDROCHLORIDE [Concomitant]
     Active Substance: DIPHENHYDRAMINE HYDROCHLORIDE
     Indication: Product used for unknown indication
  79. DOXYCYCLINE HYCLATE [Concomitant]
     Active Substance: DOXYCYCLINE HYCLATE
     Indication: Product used for unknown indication
  80. SULFISOMIDINE [Concomitant]
     Active Substance: SULFISOMIDINE
     Indication: Product used for unknown indication
  81. ENBREL [Concomitant]
     Active Substance: ETANERCEPT
     Indication: Product used for unknown indication
     Route: 058
  82. ENBREL [Concomitant]
     Active Substance: ETANERCEPT
     Route: 058
  83. ENBREL [Concomitant]
     Active Substance: ETANERCEPT
     Route: 058
  84. ENBREL [Concomitant]
     Active Substance: ETANERCEPT
     Route: 058
  85. ENTYVIO [Concomitant]
     Active Substance: VEDOLIZUMAB
     Indication: Product used for unknown indication
  86. ERELZI [Concomitant]
     Active Substance: ETANERCEPT-SZZS
     Indication: Product used for unknown indication
     Route: 058
  87. ERELZI [Concomitant]
     Active Substance: ETANERCEPT-SZZS
     Route: 058
  88. FOLIC ACID [Concomitant]
     Active Substance: FOLIC ACID
     Indication: Product used for unknown indication
     Route: 048
  89. FOLIC ACID [Concomitant]
     Active Substance: FOLIC ACID
  90. FOLIC ACID [Concomitant]
     Active Substance: FOLIC ACID
  91. FOLIC ACID [Concomitant]
     Active Substance: FOLIC ACID
  92. FOLIC ACID [Concomitant]
     Active Substance: FOLIC ACID
     Route: 048
  93. FOLIC ACID [Concomitant]
     Active Substance: FOLIC ACID
     Route: 048
  94. FOLIC ACID [Concomitant]
     Active Substance: FOLIC ACID
  95. FOLIC ACID [Concomitant]
     Active Substance: FOLIC ACID
     Route: 049
  96. FOLIC ACID [Concomitant]
     Active Substance: FOLIC ACID
  97. FOLIC ACID [Concomitant]
     Active Substance: FOLIC ACID
  98. FRAMYCETIN SULFATE [Concomitant]
     Active Substance: FRAMYCETIN SULFATE
     Indication: Product used for unknown indication
  99. GOLIMUMAB [Concomitant]
     Active Substance: GOLIMUMAB
     Indication: Product used for unknown indication
  100. GRAMICIDIN [Concomitant]
     Active Substance: GRAMICIDIN
     Indication: Product used for unknown indication
  101. HUMIRA [Concomitant]
     Active Substance: ADALIMUMAB
     Indication: Product used for unknown indication
     Route: 058
  102. HUMIRA [Concomitant]
     Active Substance: ADALIMUMAB
     Route: 058
  103. HUMIRA [Concomitant]
     Active Substance: ADALIMUMAB
     Route: 058
  104. HUMIRA [Concomitant]
     Active Substance: ADALIMUMAB
     Route: 058
  105. HYDROCORTISONE SODIUM SUCCINATE [Concomitant]
     Active Substance: HYDROCORTISONE SODIUM SUCCINATE
     Indication: Product used for unknown indication
     Route: 048
  106. HYDROCORTISONE SODIUM SUCCINATE [Concomitant]
     Active Substance: HYDROCORTISONE SODIUM SUCCINATE
     Route: 048
  107. HYDROXYCHLOROQUINE [Concomitant]
     Active Substance: HYDROXYCHLOROQUINE
     Indication: Product used for unknown indication
     Route: 048
  108. HYDROXYCHLOROQUINE [Concomitant]
     Active Substance: HYDROXYCHLOROQUINE
     Route: 048
  109. HYDROXYCHLOROQUINE [Concomitant]
     Active Substance: HYDROXYCHLOROQUINE
     Route: 058
  110. HYDROXYCHLOROQUINE [Concomitant]
     Active Substance: HYDROXYCHLOROQUINE
     Route: 048
  111. ASPIRIN [Concomitant]
     Active Substance: ASPIRIN
     Indication: Product used for unknown indication
  112. ACETAMINOPHEN [Concomitant]
     Active Substance: ACETAMINOPHEN
     Indication: Product used for unknown indication
  113. ACETAMINOPHEN [Concomitant]
     Active Substance: ACETAMINOPHEN
  114. HYDROXYCHLOROQUINE SULFATE [Concomitant]
     Active Substance: HYDROXYCHLOROQUINE SULFATE
     Indication: Product used for unknown indication
     Route: 048
  115. HYDROXYCHLOROQUINE SULFATE [Concomitant]
     Active Substance: HYDROXYCHLOROQUINE SULFATE
     Route: 048
  116. HYDROXYCHLOROQUINE SULFATE [Concomitant]
     Active Substance: HYDROXYCHLOROQUINE SULFATE
     Route: 048
  117. HYDROXYCHLOROQUINE SULFATE [Concomitant]
     Active Substance: HYDROXYCHLOROQUINE SULFATE
  118. HYDROXYCHLOROQUINE SULFATE [Concomitant]
     Active Substance: HYDROXYCHLOROQUINE SULFATE
  119. HYDROXYCHLOROQUINE SULFATE [Concomitant]
     Active Substance: HYDROXYCHLOROQUINE SULFATE
     Route: 049
  120. HYDROXYCHLOROQUINE SULFATE [Concomitant]
     Active Substance: HYDROXYCHLOROQUINE SULFATE
     Route: 048
  121. HYDROXYCHLOROQUINE SULFATE [Concomitant]
     Active Substance: HYDROXYCHLOROQUINE SULFATE
  122. INFLIXIMAB [Concomitant]
     Active Substance: INFLIXIMAB
     Indication: Product used for unknown indication
     Route: 042
  123. INFLIXIMAB [Concomitant]
     Active Substance: INFLIXIMAB
  124. ISOPROPYL ALCOHOL [Concomitant]
     Active Substance: ISOPROPYL ALCOHOL
     Indication: Product used for unknown indication
     Route: 048
  125. LYRICA [Concomitant]
     Active Substance: PREGABALIN
     Indication: Product used for unknown indication
  126. MESALAMINE [Concomitant]
     Active Substance: MESALAMINE
     Indication: Product used for unknown indication
  127. METHOTREXATE [Concomitant]
     Active Substance: METHOTREXATE
     Indication: Product used for unknown indication
     Route: 048
  128. METHOTREXATE [Concomitant]
     Active Substance: METHOTREXATE
     Route: 013
  129. METHOTREXATE [Concomitant]
     Active Substance: METHOTREXATE
     Route: 048
  130. METHOTREXATE [Concomitant]
     Active Substance: METHOTREXATE
     Route: 048
  131. METHOTREXATE [Concomitant]
     Active Substance: METHOTREXATE
  132. METHOTREXATE [Concomitant]
     Active Substance: METHOTREXATE
     Route: 016
  133. METHOTREXATE [Concomitant]
     Active Substance: METHOTREXATE
     Route: 048
  134. METHOTREXATE [Concomitant]
     Active Substance: METHOTREXATE
     Route: 048
  135. METHOTREXATE [Concomitant]
     Active Substance: METHOTREXATE
  136. METHOTREXATE [Concomitant]
     Active Substance: METHOTREXATE
     Route: 048
  137. METHOTREXATE [Concomitant]
     Active Substance: METHOTREXATE
     Route: 058
  138. METHOTREXATE [Concomitant]
     Active Substance: METHOTREXATE
     Route: 048
  139. METHOTREXATE [Concomitant]
     Active Substance: METHOTREXATE
     Route: 013
  140. METHOTREXATE [Concomitant]
     Active Substance: METHOTREXATE
     Route: 048
  141. METHOTREXATE [Concomitant]
     Active Substance: METHOTREXATE
     Route: 058
  142. METHYLPREDNISOLONE SODIUM SUCCINATE [Concomitant]
     Active Substance: METHYLPREDNISOLONE SODIUM SUCCINATE
     Indication: Product used for unknown indication
     Route: 048
  143. MORPHINE SULFATE [Concomitant]
     Active Substance: MORPHINE SULFATE
     Indication: Product used for unknown indication
  144. MYCOPHENOLATE MOFETIL [Concomitant]
     Active Substance: MYCOPHENOLATE MOFETIL
     Indication: Product used for unknown indication
  145. NAPROXEN SODIUM [Concomitant]
     Active Substance: NAPROXEN SODIUM
     Indication: Product used for unknown indication
  146. NAPROXEN SODIUM [Concomitant]
     Active Substance: NAPROXEN SODIUM
  147. NITROFURAZONE [Concomitant]
     Active Substance: NITROFURAZONE
     Indication: Product used for unknown indication
     Route: 048
  148. OTEZLA [Concomitant]
     Active Substance: APREMILAST
     Indication: Product used for unknown indication
     Route: 048
  149. OTEZLA [Concomitant]
     Active Substance: APREMILAST
  150. OTEZLA [Concomitant]
     Active Substance: APREMILAST
  151. OTEZLA [Concomitant]
     Active Substance: APREMILAST
     Route: 048
  152. OTEZLA [Concomitant]
     Active Substance: APREMILAST
     Route: 048
  153. OXYCODONE [Concomitant]
     Active Substance: OXYCODONE
     Indication: Product used for unknown indication
  154. OXYCODONE TEREPHTHALATE [Concomitant]
     Active Substance: OXYCODONE TEREPHTHALATE
     Indication: Product used for unknown indication
  155. PARA-AMINOSALICYLIC ACID [Concomitant]
     Active Substance: AMINOSALICYLIC ACID
     Indication: Product used for unknown indication
  156. PHTHALYLSULFATHIAZOLE [Concomitant]
     Active Substance: PHTHALYLSULFATHIAZOLE
     Indication: Product used for unknown indication
     Route: 048
  157. PHTHALYLSULFATHIAZOLE [Concomitant]
     Active Substance: PHTHALYLSULFATHIAZOLE
     Route: 048
  158. PHTHALYLSULFATHIAZOLE [Concomitant]
     Active Substance: PHTHALYLSULFATHIAZOLE
     Route: 058
  159. PHTHALYLSULFATHIAZOLE [Concomitant]
     Active Substance: PHTHALYLSULFATHIAZOLE
     Route: 048
  160. PHTHALYLSULFATHIAZOLE [Concomitant]
     Active Substance: PHTHALYLSULFATHIAZOLE
     Route: 048
  161. PHTHALYLSULFATHIAZOLE [Concomitant]
     Active Substance: PHTHALYLSULFATHIAZOLE
  162. PHTHALYLSULFATHIAZOLE [Concomitant]
     Active Substance: PHTHALYLSULFATHIAZOLE
     Route: 016
  163. PHTHALYLSULFATHIAZOLE [Concomitant]
     Active Substance: PHTHALYLSULFATHIAZOLE
     Route: 048
  164. POLYSPORIN [Concomitant]
     Active Substance: BACITRACIN ZINC\POLYMYXIN B SULFATE
     Indication: Product used for unknown indication
  165. PREDNISONE [Concomitant]
     Active Substance: PREDNISONE
     Indication: Product used for unknown indication
     Route: 048
  166. PREDNISONE [Concomitant]
     Active Substance: PREDNISONE
     Route: 048
  167. PREDNISONE [Concomitant]
     Active Substance: PREDNISONE
     Route: 048
  168. PREDNISONE [Concomitant]
     Active Substance: PREDNISONE
  169. PREDNISONE [Concomitant]
     Active Substance: PREDNISONE
     Route: 048
  170. PREDNISONE [Concomitant]
     Active Substance: PREDNISONE
     Route: 048
  171. PREDNISONE [Concomitant]
     Active Substance: PREDNISONE
     Route: 048
  172. PREGABALIN [Concomitant]
     Active Substance: PREGABALIN
     Indication: Product used for unknown indication
  173. PSEUDOEPHEDRINE HYDROCHLORIDE [Concomitant]
     Active Substance: PSEUDOEPHEDRINE HYDROCHLORIDE
     Indication: Product used for unknown indication
  174. QUETIAPINE FUMARATE [Concomitant]
     Active Substance: QUETIAPINE FUMARATE
     Indication: Product used for unknown indication
  175. ACETAMINOPHEN\CODEINE PHOSPHATE\METHOCARBAMOL [Concomitant]
     Active Substance: ACETAMINOPHEN\CODEINE PHOSPHATE\METHOCARBAMOL
     Indication: Product used for unknown indication
  176. ACETAMINOPHEN\CODEINE PHOSPHATE\METHOCARBAMOL [Concomitant]
     Active Substance: ACETAMINOPHEN\CODEINE PHOSPHATE\METHOCARBAMOL
  177. OXYCODONE AND ACETAMINOPHEN [Concomitant]
     Active Substance: ACETAMINOPHEN\OXYCODONE HYDROCHLORIDE
     Indication: Product used for unknown indication
  178. OXYCODONE AND ACETAMINOPHEN [Concomitant]
     Active Substance: ACETAMINOPHEN\OXYCODONE HYDROCHLORIDE
  179. SULFAMETHOXAZOLE AND TRIMETHOPRIM [Concomitant]
     Active Substance: SULFAMETHOXAZOLE\TRIMETHOPRIM
     Indication: Product used for unknown indication
     Route: 067
  180. SULFAMETHOXAZOLE AND TRIMETHOPRIM [Concomitant]
     Active Substance: SULFAMETHOXAZOLE\TRIMETHOPRIM
     Route: 067
  181. SULFASALAZINE [Concomitant]
     Active Substance: SULFASALAZINE
     Indication: Product used for unknown indication
     Route: 058
  182. SULFASALAZINE [Concomitant]
     Active Substance: SULFASALAZINE
     Route: 058
  183. SULFASALAZINE [Concomitant]
     Active Substance: SULFASALAZINE
     Route: 058
  184. SULFASALAZINE [Concomitant]
     Active Substance: SULFASALAZINE
     Route: 048
  185. SULFASALAZINE [Concomitant]
     Active Substance: SULFASALAZINE
     Route: 058
  186. SULFASALAZINE [Concomitant]
     Active Substance: SULFASALAZINE
     Route: 058
  187. SULFASALAZINE [Concomitant]
     Active Substance: SULFASALAZINE
     Route: 058
  188. THYMOL [Concomitant]
     Active Substance: THYMOL
     Indication: Product used for unknown indication
     Route: 048
  189. THYMOL [Concomitant]
     Active Substance: THYMOL
     Route: 048
  190. TOCILIZUMAB [Concomitant]
     Active Substance: TOCILIZUMAB
     Indication: Product used for unknown indication
     Route: 058
  191. TOCILIZUMAB [Concomitant]
     Active Substance: TOCILIZUMAB
  192. TOCILIZUMAB [Concomitant]
     Active Substance: TOCILIZUMAB
     Route: 048
  193. TOCILIZUMAB [Concomitant]
     Active Substance: TOCILIZUMAB
     Route: 058
  194. TOCILIZUMAB [Concomitant]
     Active Substance: TOCILIZUMAB
     Route: 042
  195. TOCILIZUMAB [Concomitant]
     Active Substance: TOCILIZUMAB
     Route: 058
  196. TOCILIZUMAB [Concomitant]
     Active Substance: TOCILIZUMAB
     Route: 042
  197. TOCILIZUMAB [Concomitant]
     Active Substance: TOCILIZUMAB
     Route: 058
  198. TOCILIZUMAB [Concomitant]
     Active Substance: TOCILIZUMAB
     Route: 058
  199. TOCILIZUMAB [Concomitant]
     Active Substance: TOCILIZUMAB
     Route: 042
  200. TOCILIZUMAB [Concomitant]
     Active Substance: TOCILIZUMAB
     Route: 016
  201. TOCILIZUMAB [Concomitant]
     Active Substance: TOCILIZUMAB
     Route: 042
  202. TOCILIZUMAB [Concomitant]
     Active Substance: TOCILIZUMAB
     Route: 016
  203. TOFACITINIB CITRATE [Concomitant]
     Active Substance: TOFACITINIB CITRATE
     Indication: Product used for unknown indication
  204. TRAMADOL HYDROCHLORIDE [Concomitant]
     Active Substance: TRAMADOL HYDROCHLORIDE
     Indication: Product used for unknown indication
  205. TRICLOSAN [Concomitant]
     Active Substance: TRICLOSAN
     Indication: Product used for unknown indication
  206. TUMS [Concomitant]
     Active Substance: CALCIUM CARBONATE
     Indication: Product used for unknown indication
     Route: 016
  207. TYROTHRICIN [Concomitant]
     Active Substance: TYROTHRICIN
     Indication: Product used for unknown indication
     Route: 048
  208. TYROTHRICIN [Concomitant]
     Active Substance: TYROTHRICIN
     Route: 048
  209. USTEKINUMAB [Concomitant]
     Active Substance: USTEKINUMAB
     Indication: Product used for unknown indication
     Route: 042
  210. VITAMIN D3 [Concomitant]
     Active Substance: CHOLECALCIFEROL
     Indication: Product used for unknown indication
     Route: 016
  211. VITAMIN D3 [Concomitant]
     Active Substance: CHOLECALCIFEROL
     Route: 058
  212. VITAMIN D3 [Concomitant]
     Active Substance: CHOLECALCIFEROL
  213. XELJANZ [Concomitant]
     Active Substance: TOFACITINIB CITRATE
     Indication: Product used for unknown indication
  214. XELJANZ [Concomitant]
     Active Substance: TOFACITINIB CITRATE
     Route: 048

REACTIONS (1)
  - Death [Fatal]
